FAERS Safety Report 6403981-X (Version None)
Quarter: 2009Q4

REPORT INFORMATION
  Report Type: 
  Country: None (occurrence: None)
  Receive Date: 20091016
  Receipt Date: 20090806
  Transmission Date: 20100525
  Serious: No
  Sender: FDA-Public Use
  Company Number: US-ALEXION-A200900637

PATIENT
  Sex: Male

DRUGS (13)
  1. SOLIRIS [Suspect]
     Indication: PAROXYSMAL NOCTURNAL HAEMOGLOBINURIA
     Dosage: 600 MG QW
     Route: 042
     Dates: start: 20090429, end: 20090520
  2. SOLIRIS [Suspect]
     Dosage: 900 MG, Q2W
     Route: 042
     Dates: start: 20090610, end: 20090819
  3. SOLIRIS [Suspect]
     Dosage: 900 MG, Q12DAYS
     Route: 042
  4. EFEXOR                             /01233801/ [Concomitant]
     Dosage: UNK
     Route: 048
  5. TRAZODONE [Concomitant]
     Dosage: UNK
     Route: 048
  6. COUMADIN [Concomitant]
     Dosage: UNK
     Route: 048
  7. FLOMAX [Concomitant]
     Dosage: UNK
     Route: 048
  8. IMODIUM                            /00384302/ [Concomitant]
     Dosage: UNK
     Route: 048
  9. MULTIVITAMIN                       /00831701/ [Concomitant]
     Dosage: UNK
     Route: 048
  10. FLONASE [Concomitant]
     Dosage: UNK
     Route: 055
  11. EXJADE [Concomitant]
     Dosage: UNK
  12. PREDNISONE [Concomitant]
     Dosage: UNK
     Route: 048
  13. ARANESP [Concomitant]
     Dosage: UNK

REACTIONS (4)
  - BLOOD LACTATE DEHYDROGENASE INCREASED [None]
  - DRUG EFFECT DECREASED [None]
  - HAEMOGLOBIN DECREASED [None]
  - HAPTOGLOBIN ABNORMAL [None]
